FAERS Safety Report 6973589-6 (Version None)
Quarter: 2010Q3

REPORT INFORMATION
  Report Type: 
  Country: None (occurrence: None)
  Receive Date: 20100909
  Receipt Date: 20100831
  Transmission Date: 20110219
  Serious: Yes (Other)
  Sender: FDA-Public Use
  Company Number: US-ASTRAZENECA-2010SE34019

PATIENT
  Sex: Female

DRUGS (2)
  1. NEXIUM [Suspect]
     Indication: GASTROOESOPHAGEAL REFLUX DISEASE
     Route: 048
  2. NEXIUM [Suspect]
     Indication: GASTRINOMA
     Route: 048

REACTIONS (5)
  - ABDOMINAL NEOPLASM [None]
  - FIBROMYALGIA [None]
  - SYSTEMIC LUPUS ERYTHEMATOSUS [None]
  - ULCER [None]
  - WRONG DRUG ADMINISTERED [None]
